FAERS Safety Report 20885498 (Version 1)
Quarter: 2022Q2

REPORT INFORMATION
  Report Type: Spontaneous
  Country: US (occurrence: None)
  Receive Date: 20220527
  Receipt Date: 20220527
  Transmission Date: 20220721
  Serious: Yes (Other)
  Sender: FDA-Public Use
  Company Number: None

PATIENT
  Age: 45 Year
  Sex: Male

DRUGS (2)
  1. PAXLOVID [Suspect]
     Active Substance: NIRMATRELVIR\RITONAVIR
     Indication: COVID-19
     Dosage: FREQUENCY : TWICE A DAY;?
     Route: 048
     Dates: start: 20220518, end: 20220523
  2. PAXLOVID [Concomitant]
     Active Substance: NIRMATRELVIR\RITONAVIR
     Dates: start: 20220518, end: 20220523

REACTIONS (7)
  - COVID-19 [None]
  - Symptom recurrence [None]
  - Nasal congestion [None]
  - Pyrexia [None]
  - Chills [None]
  - Pain [None]
  - Fatigue [None]

NARRATIVE: CASE EVENT DATE: 20220523
